FAERS Safety Report 8064123-0 (Version None)
Quarter: 2012Q1

REPORT INFORMATION
  Report Type: 
  Country: None (occurrence: None)
  Receive Date: 20120123
  Receipt Date: 20120120
  Transmission Date: 20120608
  Serious: Yes (Hospitalization)
  Sender: FDA-Public Use
  Company Number: US-GLAXOSMITHKLINE-B0718229A

PATIENT
  Age: 51 Year
  Sex: Male
  Weight: 95.5 kg

DRUGS (8)
  1. HYDROCHLOROTHIAZIDE [Concomitant]
  2. GLUCOVANCE [Concomitant]
  3. AVANDARYL [Suspect]
     Indication: DIABETES MELLITUS
     Dosage: 1TAB PER DAY
     Route: 048
     Dates: end: 20061121
  4. TRICOR [Concomitant]
  5. LIPITOR [Concomitant]
  6. MICARDIS [Concomitant]
  7. AVANDIA [Suspect]
     Indication: DIABETES MELLITUS
     Route: 048
  8. AVANDAMET [Suspect]
     Indication: DIABETES MELLITUS
     Route: 048

REACTIONS (2)
  - CORONARY ARTERY BYPASS [None]
  - MYOCARDIAL INFARCTION [None]
